FAERS Safety Report 6410892-2 (Version None)
Quarter: 2009Q4

REPORT INFORMATION
  Report Type: 
  Country: None (occurrence: None)
  Receive Date: 20091022
  Receipt Date: 20091015
  Transmission Date: 20100525
  Serious: Yes (Hospitalization)
  Sender: FDA-Public Use
  Company Number: FR-NOVOPROD-292525

PATIENT
  Sex: Female

DRUGS (22)
  1. NOVONORM [Suspect]
     Indication: TYPE 2 DIABETES MELLITUS
     Dosage: 1.5 MG, QD
     Route: 048
     Dates: start: 20090822, end: 20090828
  2. BETADINE                           /00080001/ [Concomitant]
     Dosage: UNK, SINGLE
     Route: 061
     Dates: start: 20090821, end: 20090821
  3. SOLU-MEDROL [Concomitant]
     Dosage: UNK, SINGLE
     Dates: start: 20090821, end: 20090821
  4. ISOPTIN [Concomitant]
     Dosage: UNK, SINGLE
     Dates: start: 20090821, end: 20090821
  5. LOVENOX [Concomitant]
     Route: 058
     Dates: start: 20090821, end: 20090821
  6. RISORDAN                           /00110502/ [Concomitant]
     Dosage: UNK, SINGLE
     Dates: start: 20090821, end: 20090821
  7. METFORMIN HCL [Concomitant]
     Indication: TYPE 2 DIABETES MELLITUS
     Dosage: 1500 MG, QD
     Route: 048
     Dates: start: 20090822, end: 20090828
  8. KARDEGIC                           /00002703/ [Concomitant]
     Dosage: 160 MG, QD
     Route: 048
     Dates: start: 20090822
  9. PLAVIX [Concomitant]
     Dosage: 75 MG, QD
     Route: 048
     Dates: start: 20090822
  10. AMLODIPINE BESYLATE [Concomitant]
     Dosage: 10 MG, QD
     Route: 048
     Dates: start: 20090822
  11. VISIPAQUE [Concomitant]
     Route: 042
     Dates: start: 20090821, end: 20090821
  12. JANUVIA [Concomitant]
     Dates: start: 20090101
  13. AERIUS                             /01009701/ [Concomitant]
  14. HAVLANE [Concomitant]
  15. DAFLON                             /00426001/ [Concomitant]
  16. FORLAX [Concomitant]
  17. NORDAZ [Concomitant]
  18. IMOVANE [Concomitant]
  19. LEXOMIL [Concomitant]
  20. POLARAMINE                         /00043702/ [Concomitant]
  21. POLARAMINE [Concomitant]
  22. XYZAL [Concomitant]

REACTIONS (1)
  - IDIOPATHIC URTICARIA [None]
